FAERS Safety Report 6775744-7 (Version None)
Quarter: 2010Q2

REPORT INFORMATION
  Report Type: 
  Country: None (occurrence: None)
  Receive Date: 20100617
  Receipt Date: 20100616
  Transmission Date: 20101027
  Serious: Yes (Hospitalization)
  Sender: FDA-Public Use
  Company Number: CHPA2010GB10047

PATIENT
  Age: 28 Year
  Sex: Female

DRUGS (1)
  1. SCOPOLAMINE [Suspect]
     Indication: SALIVARY HYPERSECRETION
     Dosage: 1.5 DF, Q72H
     Route: 062

REACTIONS (4)
  - OFF LABEL USE [None]
  - OVERDOSE [None]
  - PNEUMONIA ASPIRATION [None]
  - WRONG TECHNIQUE IN DRUG USAGE PROCESS [None]
